FAERS Safety Report 24964011 (Version 1)
Quarter: 2025Q1

REPORT INFORMATION
  Report Type: Spontaneous
  Country: US (occurrence: US)
  Receive Date: 20250213
  Receipt Date: 20250213
  Transmission Date: 20250409
  Serious: Yes (Death, Hospitalization, Other)
  Sender: BAXTER
  Company Number: US-BAXTER-2025BAX010927

PATIENT
  Age: 38 Year
  Sex: Female

DRUGS (3)
  1. ZOSYN [Suspect]
     Active Substance: PIPERACILLIN SODIUM\TAZOBACTAM SODIUM
     Indication: Evidence based treatment
     Route: 042
  2. ZOSYN [Suspect]
     Active Substance: PIPERACILLIN SODIUM\TAZOBACTAM SODIUM
     Route: 065
  3. ZOSYN [Suspect]
     Active Substance: PIPERACILLIN SODIUM\TAZOBACTAM SODIUM
     Indication: Evidence based treatment
     Route: 042
     Dates: start: 20241106, end: 20241108

REACTIONS (6)
  - Cardiogenic shock [Fatal]
  - Acute respiratory failure [Fatal]
  - Multiple organ dysfunction syndrome [Fatal]
  - Cardiac arrest [Fatal]
  - Product label confusion [Unknown]
  - Intercepted product dispensing error [Unknown]

NARRATIVE: CASE EVENT DATE: 20241106
